FAERS Safety Report 6377065-3 (Version None)
Quarter: 2009Q3

REPORT INFORMATION
  Report Type: 
  Country: None (occurrence: None)
  Receive Date: 20090925
  Receipt Date: 20090916
  Transmission Date: 20100115
  Serious: Yes (Other)
  Sender: FDA-Public Use
  Company Number: US-PFIZER INC-2004108830

PATIENT
  Sex: Female
  Weight: 75 kg

DRUGS (12)
  1. PROVERA [Suspect]
     Indication: HORMONE REPLACEMENT THERAPY
     Dosage: 10 MG, UNK
     Route: 048
     Dates: start: 19800101, end: 19970101
  2. PREMARIN [Suspect]
     Indication: HORMONE REPLACEMENT THERAPY
     Dosage: 0.625 MG, UNK
     Dates: start: 19800101, end: 19970101
  3. PREMPRO [Suspect]
     Indication: HORMONE REPLACEMENT THERAPY
     Dosage: 0.625/5MG
     Dates: start: 19970101, end: 20020101
  4. CELEBREX [Concomitant]
     Indication: ARTHRITIS
     Dosage: UNK
     Dates: start: 20001001
  5. AMBIEN [Concomitant]
     Dosage: UNK
     Dates: start: 20001001
  6. ZOCOR [Concomitant]
     Indication: BLOOD CHOLESTEROL
     Dosage: UNK
     Dates: start: 20021001, end: 20030101
  7. LEVAQUIN [Concomitant]
     Dosage: UNK
     Dates: start: 20010401, end: 20030301
  8. HYOSCYAMINE [Concomitant]
     Dosage: UNK
     Dates: start: 20010501, end: 20030501
  9. EQUAGESIC [Concomitant]
     Indication: PAIN
     Dosage: UNK
     Dates: start: 20011001, end: 20030201
  10. VICODIN [Concomitant]
     Indication: PAIN
     Dosage: UNK
     Dates: start: 20020101, end: 20030101
  11. IBUPROFEN [Concomitant]
     Indication: ARTHRITIS
     Dosage: UNK
     Dates: start: 20020901, end: 20040601
  12. DIOVAN HCT [Concomitant]
     Dosage: UNK
     Dates: start: 20010701

REACTIONS (1)
  - BREAST CANCER FEMALE [None]
